FAERS Safety Report 7625202-2 (Version None)
Quarter: 2011Q3

REPORT INFORMATION
  Report Type: 
  Country: None (occurrence: None)
  Receive Date: 20110713
  Receipt Date: 20110627
  Transmission Date: 20111222
  Serious: Yes (Other)
  Sender: FDA-Public Use
  Company Number: NL-GDP-11411022

PATIENT
  Sex: Female

DRUGS (1)
  1. METVIX (METHYL AMINOLEVULINATE HYDROCHLORIDE) 16% [Suspect]
     Indication: BASAL CELL CARCINOMA
     Dosage: (1 DF QD TOPICAL)
     Route: 061
     Dates: start: 20110610, end: 20110610

REACTIONS (5)
  - NERVOUSNESS [None]
  - PALPITATIONS [None]
  - TINNITUS [None]
  - HEADACHE [None]
  - SKIN DISORDER [None]
